FAERS Safety Report 16281667 (Version 4)
Quarter: 2019Q2

REPORT INFORMATION
  Report Type: Spontaneous
  Country: BR (occurrence: BR)
  Receive Date: 20190503
  Receipt Date: 20190515
  Transmission Date: 20190711
  Serious: Yes (Other)
  Sender: FDA-Public Use
  Company Number: BR-PFIZER INC-2019185466

PATIENT
  Age: 45 Year
  Sex: Male

DRUGS (4)
  1. SULFASALAZINE. [Suspect]
     Active Substance: SULFASALAZINE
     Indication: ANKYLOSING SPONDYLITIS
  2. METHOTREXATE SODIUM. [Suspect]
     Active Substance: METHOTREXATE SODIUM
     Indication: SACROILIITIS
  3. METHOTREXATE SODIUM. [Suspect]
     Active Substance: METHOTREXATE SODIUM
     Indication: ANKYLOSING SPONDYLITIS
     Dosage: UNK
     Dates: start: 201602
  4. SULFASALAZINE. [Suspect]
     Active Substance: SULFASALAZINE
     Indication: SACROILIITIS
     Dosage: UNK
     Dates: start: 2013

REACTIONS (1)
  - Hepatitis B reactivation [Recovered/Resolved]

NARRATIVE: CASE EVENT DATE: 201609
